FAERS Safety Report 6059177-7 (Version None)
Quarter: 2009Q1

REPORT INFORMATION
  Report Type: 
  Country: None (occurrence: None)
  Receive Date: 20090127
  Receipt Date: 20090127
  Transmission Date: 20090719
  Serious: No
  Sender: FDA-Public Use
  Company Number: None

PATIENT
  Age: 34 Year
  Sex: Female
  Weight: 9.0719 kg

DRUGS (1)
  1. MIRENA [Suspect]
     Indication: CONTRACEPTION
     Dates: start: 20071213, end: 20090126

REACTIONS (5)
  - BACK PAIN [None]
  - DYSPAREUNIA [None]
  - INFECTION [None]
  - PAIN [None]
  - POLYMENORRHOEA [None]
